FAERS Safety Report 18248905 (Version 1)
Quarter: 2020Q3

REPORT INFORMATION
  Report Type: Spontaneous
  Country: US (occurrence: US)
  Receive Date: 20200909
  Receipt Date: 20200909
  Transmission Date: 20201103
  Serious: No
  Sender: FDA-Public Use
  Company Number: US-PERRIGO-20US010699

PATIENT
  Age: 33 Year
  Sex: Female
  Weight: 74.38 kg

DRUGS (1)
  1. ALBUTEROL SULFATE. [Suspect]
     Active Substance: ALBUTEROL SULFATE
     Indication: DYSPNOEA
     Dosage: 180 MCG, SINGLE
     Route: 055
     Dates: start: 20200720, end: 20200720

REACTIONS (7)
  - Dry throat [Recovered/Resolved]
  - Cough [Recovering/Resolving]
  - Bronchospasm [Recovered/Resolved]
  - Increased viscosity of upper respiratory secretion [Recovered/Resolved]
  - Throat irritation [Recovered/Resolved]
  - Pharyngeal haemorrhage [Recovered/Resolved]
  - Thirst [Recovered/Resolved]

NARRATIVE: CASE EVENT DATE: 20200720
